FAERS Safety Report 12809794 (Version 1)
Quarter: 2016Q4

REPORT INFORMATION
  Report Type: Spontaneous
  Country: RO (occurrence: RO)
  Receive Date: 20161005
  Receipt Date: 20161005
  Transmission Date: 20170207
  Serious: Yes (Hospitalization)
  Sender: FDA-Public Use
  Company Number: RO-ROCHE-1838475

PATIENT
  Age: 61 Year
  Sex: Female

DRUGS (8)
  1. ETOPOSIDE. [Concomitant]
     Active Substance: ETOPOSIDE
     Indication: NON-HODGKIN^S LYMPHOMA
  2. DOXORUBICIN [Concomitant]
     Active Substance: DOXORUBICIN
     Indication: NON-HODGKIN^S LYMPHOMA
     Dosage: IN APRIL, JUNE, AUGUST, OCTOBER, DECEMBER 2014, AND FEBRUARY 2015
     Route: 065
     Dates: end: 201504
  3. PREDNISONE. [Concomitant]
     Active Substance: PREDNISONE
     Indication: NON-HODGKIN^S LYMPHOMA
     Dosage: IN APRIL, JUNE, AUGUST, OCTOBER, DECEMBER 2014, AND FEBRUARY 2015
     Route: 065
     Dates: end: 201504
  4. MABTHERA [Suspect]
     Active Substance: RITUXIMAB
     Indication: NON-HODGKIN^S LYMPHOMA
     Dosage: IN APRIL, JUNE, AUGUST, OCTOBER, DECEMBER 2014, AND FEBRUARY 2015
     Route: 065
     Dates: end: 201502
  5. CYCLOPHOSPHAMIDE. [Concomitant]
     Active Substance: CYCLOPHOSPHAMIDE
     Indication: NON-HODGKIN^S LYMPHOMA
     Dosage: IN APRIL, JUNE, AUGUST, OCTOBER, DECEMBER 2014, AND FEBRUARY 2015
     Route: 065
     Dates: end: 201504
  6. VINCRISTINE [Concomitant]
     Active Substance: VINCRISTINE
     Indication: NON-HODGKIN^S LYMPHOMA
     Dosage: IN APRIL, JUNE, AUGUST, OCTOBER, DECEMBER 2014, AND FEBRUARY 2015
     Route: 065
     Dates: end: 201504
  7. EPIRUBICIN [Concomitant]
     Active Substance: EPIRUBICIN
     Indication: NON-HODGKIN^S LYMPHOMA
     Dosage: IN APRIL, JUNE, AUGUST, OCTOBER, DECEMBER 2014, AND FEBRUARY 2015
     Route: 065
     Dates: end: 201504
  8. CARBOPLATIN. [Concomitant]
     Active Substance: CARBOPLATIN
     Indication: NON-HODGKIN^S LYMPHOMA

REACTIONS (9)
  - Hepatomegaly [Recovered/Resolved]
  - Hypoproteinaemia [Recovered/Resolved]
  - Blood iron increased [Recovered/Resolved]
  - Splenomegaly [Not Recovered/Not Resolved]
  - Hepatocellular injury [Recovered/Resolved]
  - Hypocholesterolaemia [Not Recovered/Not Resolved]
  - Pancytopenia [Recovered/Resolved]
  - Hyperglycaemia [Recovered/Resolved]
  - Supraventricular tachycardia [Recovered/Resolved]

NARRATIVE: CASE EVENT DATE: 201404
